FAERS Safety Report 8125443-4 (Version None)
Quarter: 2012Q1

REPORT INFORMATION
  Report Type: 
  Country: None (occurrence: None)
  Receive Date: 20120209
  Receipt Date: 20120206
  Transmission Date: 20120608
  Serious: Yes (Death, Hospitalization)
  Sender: FDA-Public Use
  Company Number: FR-MERCK-1201FRA00004

PATIENT
  Age: 90 Year
  Sex: Female
  Weight: 87 kg

DRUGS (6)
  1. BETAMETHASONE DIPROPIONATE [Concomitant]
     Indication: PRURITUS
     Route: 061
  2. IBUPROFEN [Concomitant]
     Route: 065
     Dates: start: 20100906
  3. TRIMETAZIDINE HYDROCHLORIDE [Concomitant]
     Route: 048
     Dates: start: 20110319, end: 20110730
  4. JANUVIA [Suspect]
     Indication: DIABETES MELLITUS
     Route: 048
     Dates: start: 20100708, end: 20110730
  5. CARBIMAZOLE [Suspect]
     Route: 048
     Dates: start: 20110702, end: 20110724
  6. CLARINEX [Concomitant]
     Indication: URTICARIA
     Route: 065
     Dates: start: 20110117

REACTIONS (3)
  - BLISTER [None]
  - ERYTHEMA [None]
  - SKIN BURNING SENSATION [None]
